FAERS Safety Report 5171433-3 (Version None)
Quarter: 2006Q4

REPORT INFORMATION
  Report Type: 
  Country: None (occurrence: None)
  Receive Date: 20061213
  Receipt Date: 20061107
  Transmission Date: 20070319
  Serious: Yes (Other)
  Sender: FDA-Public Use
  Company Number: GB-AVENTIS-200622479GDDC

PATIENT
  Age: 27 Year
  Sex: Female

DRUGS (4)
  1. METRONIDAZOLE [Suspect]
  2. ERYTHROMYCIN [Suspect]
  3. CEFUROXIME SODIUM [Suspect]
  4. BETAMETHASONE [Suspect]

REACTIONS (6)
  - ABORTION SPONTANEOUS [None]
  - DRUG EXPOSURE DURING PREGNANCY [None]
  - OLIGOHYDRAMNIOS [None]
  - PREGNANCY [None]
  - PREMATURE RUPTURE OF MEMBRANES [None]
  - TWIN PREGNANCY [None]
